FAERS Safety Report 5079524-2 (Version None)
Quarter: 2006Q3

REPORT INFORMATION
  Report Type: 
  Country: None (occurrence: None)
  Receive Date: 20060814
  Receipt Date: 20060111
  Transmission Date: 20061208
  Serious: No
  Sender: FDA-Public Use
  Company Number: US-BRISTOL-MYERS SQUIBB COMPANY-13243456

PATIENT
  Age: 64 Year
  Sex: Female
  Weight: 82 kg

DRUGS (12)
  1. GLUCOVANCE [Suspect]
     Indication: DIABETES MELLITUS
  2. NITROSTAT [Concomitant]
     Route: 060
  3. STARLIX [Concomitant]
  4. AVANDIA [Concomitant]
  5. HYDROCODONE BITARTRATE [Concomitant]
     Dosage: DOSAGE FORM= 7.5 MG/750 MG
  6. ASPIRIN [Concomitant]
  7. TRICOR [Concomitant]
  8. DIGOXIN [Concomitant]
  9. ISOSORBIDE DINITRATE [Concomitant]
  10. DIOVAN [Concomitant]
  11. LOTREL [Concomitant]
     Dosage: 5-10 MG
  12. ZOCOR [Concomitant]

REACTIONS (2)
  - DIARRHOEA [None]
  - MEDICATION RESIDUE [None]
